FAERS Safety Report 8271104-0 (Version None)
Quarter: 2012Q1

REPORT INFORMATION
  Report Type: 
  Country: None (occurrence: None)
  Receive Date: 20120327
  Receipt Date: 20100113
  Transmission Date: 20120608
  Serious: Yes (Hospitalization)
  Sender: FDA-Public Use
  Company Number: PHEH2009US18360

PATIENT
  Age: 85 Year
  Sex: Female
  Weight: 57.6 kg

DRUGS (13)
  1. SYNTHROID [Concomitant]
  2. LANTUS [Concomitant]
  3. FERROUS SULFATE TAB [Concomitant]
  4. ADVAIR HFA [Concomitant]
  5. ASPIRIN [Concomitant]
  6. COZAAR [Concomitant]
  7. LASIX [Concomitant]
  8. GLEEVEC [Suspect]
     Indication: CHRONIC MYELOID LEUKAEMIA
     Dosage: 400 MG, QD, ORAL
     Route: 048
     Dates: start: 20090901, end: 20091214
  9. PLAVIX [Concomitant]
  10. FOLIC ACID [Concomitant]
  11. AMLODIPINE [Concomitant]
  12. HYDRALAZINE HCL [Concomitant]
  13. ZOCOR [Concomitant]

REACTIONS (4)
  - WEIGHT INCREASED [None]
  - OEDEMA [None]
  - DYSPNOEA [None]
  - CARDIAC FAILURE CONGESTIVE [None]
